FAERS Safety Report 5820864-4 (Version None)
Quarter: 2008Q3

REPORT INFORMATION
  Report Type: 
  Country: None (occurrence: None)
  Receive Date: 20080724
  Receipt Date: 20080220
  Transmission Date: 20090109
  Serious: No
  Sender: FDA-Public Use
  Company Number: US-BAYER-200810863BCC

PATIENT
  Age: 28 Year
  Sex: Female
  Weight: 54 kg

DRUGS (1)
  1. ALEVE [Suspect]
     Indication: DRUG USE FOR UNKNOWN INDICATION
     Dosage: UNIT DOSE: 220 MG
     Dates: start: 20080219

REACTIONS (1)
  - CHEST PAIN [None]
